FAERS Safety Report 8417989-6 (Version None)
Quarter: 2012Q2

REPORT INFORMATION
  Report Type: 
  Country: None (occurrence: None)
  Receive Date: 20120607
  Receipt Date: 20120530
  Transmission Date: 20120825
  Serious: Yes (Hospitalization)
  Sender: FDA-Public Use
  Company Number: US-ASTRAZENECA-2011SE41582

PATIENT
  Age: 59 Year
  Sex: Female
  Weight: 102.1 kg

DRUGS (13)
  1. ROLAIDS [Concomitant]
  2. BISMUTH SUBSALICYLATE [Concomitant]
  3. CALCIUM CARBONATE [Concomitant]
  4. ARTHROTEC [Concomitant]
     Indication: ARTHRITIS
  5. DAELTRIL [Concomitant]
     Indication: BLADDER DISORDER
  6. CELEXA [Concomitant]
     Indication: DEPRESSION
  7. TAGAMET [Concomitant]
     Dosage: ONCE DAILY
     Dates: start: 20040101, end: 20040101
  8. HYDROCODONE BITARTRATE [Concomitant]
     Indication: PAIN IN EXTREMITY
  9. WELLBUTRIN [Concomitant]
     Indication: DEPRESSION
  10. NEXIUM [Suspect]
     Indication: GASTROOESOPHAGEAL REFLUX DISEASE
     Dosage: TWO PER DAY FOR 2 YEARS AND ONCE PER DAY THEREAFTER
     Route: 048
     Dates: start: 20050101
  11. NEXIUM [Suspect]
     Dosage: DAILY
     Route: 048
     Dates: start: 20060101
  12. RISPIDAL [Concomitant]
     Indication: BIPOLAR DISORDER
  13. PRILOSEC [Concomitant]
     Dosage: ONCE DAILY
     Route: 048
     Dates: start: 20050101, end: 20050101

REACTIONS (7)
  - BACK PAIN [None]
  - FEMUR FRACTURE [None]
  - LOWER LIMB FRACTURE [None]
  - OSTEOPOROSIS [None]
  - FOOT FRACTURE [None]
  - PAIN IN EXTREMITY [None]
  - LIMB INJURY [None]
